FAERS Safety Report 15842649 (Version 7)
Quarter: 2019Q2

REPORT INFORMATION
  Report Type: Spontaneous
  Country: US (occurrence: US)
  Receive Date: 20190118
  Receipt Date: 20190405
  Transmission Date: 20190711
  Serious: Yes (Other)
  Sender: FDA-Public Use
  Company Number: US-BAYER-2019-014628

PATIENT
  Age: 46 Year
  Sex: Female

DRUGS (3)
  1. ADEMPAS [Suspect]
     Active Substance: RIOCIGUAT
     Indication: PRODUCT USED FOR UNKNOWN INDICATION
     Dosage: UNK
     Route: 065
     Dates: start: 20190115, end: 20190115
  2. ADEMPAS [Suspect]
     Active Substance: RIOCIGUAT
     Indication: PRODUCT USED FOR UNKNOWN INDICATION
     Dosage: 2 MG, TID
  3. AMBRISENTAN [Suspect]
     Active Substance: AMBRISENTAN
     Indication: PULMONARY ARTERIAL HYPERTENSION
     Dosage: 10 MG, QD
     Route: 065
     Dates: start: 20180726

REACTIONS (19)
  - Tooth abscess [Unknown]
  - Dizziness [Recovered/Resolved]
  - Oedema peripheral [Recovered/Resolved]
  - Ear infection [Not Recovered/Not Resolved]
  - Fatigue [Not Recovered/Not Resolved]
  - Oedema [Unknown]
  - Flushing [Not Recovered/Not Resolved]
  - Diarrhoea [Not Recovered/Not Resolved]
  - Swelling face [Unknown]
  - Chest pain [Not Recovered/Not Resolved]
  - Gastrooesophageal reflux disease [Not Recovered/Not Resolved]
  - Peripheral swelling [Not Recovered/Not Resolved]
  - Nausea [Recovered/Resolved]
  - Product dose omission [Not Recovered/Not Resolved]
  - Dizziness [Recovered/Resolved]
  - Gastrooesophageal reflux disease [Recovered/Resolved]
  - Dizziness [Recovered/Resolved]
  - Headache [Recovered/Resolved]
  - Palpitations [Not Recovered/Not Resolved]

NARRATIVE: CASE EVENT DATE: 20181228
